FAERS Safety Report 17408314 (Version 1)
Quarter: 2020Q1

REPORT INFORMATION
  Report Type: Spontaneous
  Country: US (occurrence: US)
  Receive Date: 20200212
  Receipt Date: 20200212
  Transmission Date: 20200409
  Serious: Yes (Hospitalization, Other)
  Sender: FDA-Public Use
  Company Number: US-GLAXOSMITHKLINE-US2020GSK021244

PATIENT
  Age: 49 Year
  Sex: Female

DRUGS (3)
  1. LEVOTHYROXIN [Suspect]
     Active Substance: LEVOTHYROXINE
     Indication: HYPOTHYROIDISM
     Dosage: UNK
  2. FLUTICASONE. [Suspect]
     Active Substance: FLUTICASONE
     Indication: HYPERSENSITIVITY
     Dosage: UNK, DAILY
     Route: 045
  3. FLUTICASONE. [Suspect]
     Active Substance: FLUTICASONE
     Indication: ASTHMA

REACTIONS (32)
  - Hypopituitarism [Recovering/Resolving]
  - Headache [Recovering/Resolving]
  - Vomiting [Recovering/Resolving]
  - Exercise tolerance decreased [Recovering/Resolving]
  - Endocrine disorder [Recovering/Resolving]
  - Dizziness [Recovering/Resolving]
  - Joint range of motion decreased [Recovering/Resolving]
  - Asthenopia [Recovering/Resolving]
  - Cortisol decreased [Recovered/Resolved]
  - Hypernatraemia [Recovered/Resolved]
  - Fluid imbalance [Recovered/Resolved]
  - Visual impairment [Recovering/Resolving]
  - Paraesthesia [Recovering/Resolving]
  - Hypoaesthesia [Recovering/Resolving]
  - Dysarthria [Recovering/Resolving]
  - Cerebrospinal fluid leakage [Recovering/Resolving]
  - Balance disorder [Recovering/Resolving]
  - Affect lability [Recovering/Resolving]
  - Neck pain [Recovering/Resolving]
  - Diabetes insipidus [Recovering/Resolving]
  - Urine osmolarity decreased [Recovered/Resolved]
  - Nausea [Recovering/Resolving]
  - Blood corticotrophin decreased [Recovered/Resolved]
  - Secondary adrenocortical insufficiency [Recovering/Resolving]
  - Myalgia [Recovering/Resolving]
  - Specific gravity urine decreased [Recovering/Resolving]
  - Fatigue [Recovering/Resolving]
  - Bradyphrenia [Recovering/Resolving]
  - Skull fractured base [Recovered/Resolved]
  - Polydipsia [Recovering/Resolving]
  - Gait disturbance [Recovering/Resolving]
  - Blood thyroid stimulating hormone decreased [Recovered/Resolved]
